FAERS Safety Report 7892213-1 (Version None)
Quarter: 2011Q4

REPORT INFORMATION
  Report Type: 
  Country: None (occurrence: None)
  Receive Date: 20111104
  Receipt Date: 20100623
  Transmission Date: 20120403
  Serious: Yes (Death)
  Sender: FDA-Public Use
  Company Number: US-SANTEN INC.-INC-11-000054

PATIENT
  Sex: Female

DRUGS (1)
  1. BETIMOL [Suspect]
     Route: 047

REACTIONS (1)
  - DEATH [None]
